FAERS Safety Report 4931256-4 (Version None)
Quarter: 2006Q1

REPORT INFORMATION
  Report Type: 
  Country: None (occurrence: None)
  Receive Date: 20060227
  Receipt Date: 20060221
  Transmission Date: 20060701
  Serious: Yes (Other)
  Sender: FDA-Public Use
  Company Number: 143944USA

PATIENT
  Age: 48 Year
  Sex: Male

DRUGS (5)
  1. GLATIRAMER ACETATE [Suspect]
     Indication: MULTIPLE SCLEROSIS
     Dosage: 20 MILLIGRAM
     Route: 048
     Dates: start: 20010425
  2. GABAPENTIN [Concomitant]
  3. NOVO-TRIPTINE [Concomitant]
  4. AMITRIPTYLINE HYDROCHLORIDE [Concomitant]
  5. ATORVASTATIN CALCIUM [Concomitant]

REACTIONS (7)
  - BURNING SENSATION [None]
  - CONTUSION [None]
  - INJECTION SITE BRUISING [None]
  - INJECTION SITE NECROSIS [None]
  - INJECTION SITE PAIN [None]
  - PAIN [None]
  - WRONG TECHNIQUE IN DRUG USAGE PROCESS [None]
